FAERS Safety Report 5094940-0 (Version None)
Quarter: 2006Q3

REPORT INFORMATION
  Report Type: 
  Country: None (occurrence: None)
  Receive Date: 20060901
  Receipt Date: 20060821
  Transmission Date: 20061208
  Serious: Yes (Hospitalization, Other)
  Sender: FDA-Public Use
  Company Number: BR-JNJFOC-20060805351

PATIENT
  Age: 53 Year
  Sex: Male

DRUGS (6)
  1. RISPERDAL [Suspect]
     Indication: CEREBRAL PALSY
     Route: 048
  2. RISPERDAL [Suspect]
     Indication: DEMENTIA
     Route: 048
  3. DIAZEPAM [Concomitant]
     Indication: DRUG USE FOR UNKNOWN INDICATION
     Route: 048
  4. FOLIC ACID [Concomitant]
     Indication: DRUG USE FOR UNKNOWN INDICATION
     Route: 048
  5. FERROUS SULFATE TAB [Concomitant]
     Indication: DRUG USE FOR UNKNOWN INDICATION
     Route: 048
  6. LIQUEMINE [Concomitant]
     Indication: DRUG USE FOR UNKNOWN INDICATION
     Route: 058

REACTIONS (8)
  - DEFICIENCY ANAEMIA [None]
  - EAR INFECTION [None]
  - HYPERTHERMIA MALIGNANT [None]
  - MUSCLE RIGIDITY [None]
  - PNEUMONIA ASPIRATION [None]
  - SINUSITIS [None]
  - TREMOR [None]
  - URINARY TRACT INFECTION [None]
